FAERS Safety Report 13540922 (Version 1)
Quarter: 2017Q2

REPORT INFORMATION
  Report Type: Spontaneous
  Country: US (occurrence: US)
  Receive Date: 20170512
  Receipt Date: 20170512
  Transmission Date: 20170830
  Serious: No
  Sender: FDA-Public Use
  Company Number: US-JUBILANT CADISTA PHARMACEUTICALS-2017JUB00050

PATIENT
  Sex: Female

DRUGS (1)
  1. VALACYCLOVIR HYDROCHLORIDE. [Suspect]
     Active Substance: VALACYCLOVIR HYDROCHLORIDE

REACTIONS (1)
  - Coeliac disease [Unknown]
